FAERS Safety Report 20524080 (Version 1)
Quarter: 2022Q1

REPORT INFORMATION
  Report Type: Other
  Country: US (occurrence: None)
  Receive Date: 20220228
  Receipt Date: 20220228
  Transmission Date: 20220423
  Serious: Yes (Other)
  Sender: FDA-Public Use
  Company Number: US-ROCHE-3031167

PATIENT
  Sex: Male
  Weight: 136 kg

DRUGS (15)
  1. XELODA [Suspect]
     Active Substance: CAPECITABINE
     Indication: Hepatic cancer
     Dosage: TAKE 4 TABLET BY MOUTH 2 TIMES DAILY. TAKE AS DIRECTED ON DAY 1 TO 14 OF CHEMOTHERAPY CYCLE (FOR 14
     Route: 048
     Dates: start: 20220216
  2. PYRIMIDINE ANALOGUES [Concomitant]
  3. LIPITOR [Concomitant]
     Active Substance: ATORVASTATIN CALCIUM
  4. FARXIGA [Concomitant]
     Active Substance: DAPAGLIFLOZIN PROPANEDIOL
  5. TRICOR [Concomitant]
     Active Substance: FENOFIBRATE
  6. AMARYL [Concomitant]
     Active Substance: GLIMEPIRIDE
  7. NORCO [Concomitant]
     Active Substance: ACETAMINOPHEN\HYDROCODONE BITARTRATE
     Dosage: 75 MG-325MG
  8. PRINIVIL [Concomitant]
     Active Substance: LISINOPRIL
  9. GLUCOPHAGE [Concomitant]
     Active Substance: METFORMIN HYDROCHLORIDE
  10. NAPROSYN [Concomitant]
     Active Substance: NAPROXEN
  11. ZOFRAN [Concomitant]
     Active Substance: ONDANSETRON HYDROCHLORIDE
  12. POLYETHYLENE GLYCOL [Concomitant]
     Active Substance: POLYETHYLENE GLYCOL
     Dosage: GOLYTELY, NULYTRLY 236-22.74-6.74-5.86 GRAM SUSPENSION
  13. ZOLOFT [Concomitant]
     Active Substance: SERTRALINE HYDROCHLORIDE
  14. ZANAFLEX [Concomitant]
     Active Substance: TIZANIDINE HYDROCHLORIDE
  15. SODIUM CHLORIDE [Concomitant]
     Active Substance: SODIUM CHLORIDE
     Dosage: FLUSH

REACTIONS (9)
  - Diabetes mellitus [Unknown]
  - Off label use [Unknown]
  - Anxiety [Unknown]
  - Hypertension [Unknown]
  - Anaemia of chronic disease [Unknown]
  - Weight decreased [Unknown]
  - Abdominal pain [Unknown]
  - Gastritis [Unknown]
  - Hepatic mass [Unknown]
